FAERS Safety Report 24651955 (Version 1)
Quarter: 2024Q4

REPORT INFORMATION
  Report Type: Spontaneous
  Country: GB (occurrence: GB)
  Receive Date: 20241122
  Receipt Date: 20241122
  Transmission Date: 20250115
  Serious: Yes (Other)
  Sender: TEVA
  Company Number: GB-MHRA-TPP26619612C7142905YC1731147435364

PATIENT
  Age: 81 Year
  Sex: Female

DRUGS (2)
  1. TRIMETHOPRIM [Suspect]
     Active Substance: TRIMETHOPRIM
     Route: 065
  2. NITROFURANTOIN [Concomitant]
     Active Substance: NITROFURANTOIN
     Dosage: TAKE ONE CAPSULE TWICE DAILY FOR 7 DAYS, TO TRE...
     Route: 065

REACTIONS (1)
  - Gastrointestinal disorder [Recovered/Resolved]
